FAERS Safety Report 6391923-5 (Version None)
Quarter: 2009Q4

REPORT INFORMATION
  Report Type: 
  Country: None (occurrence: None)
  Receive Date: 20091007
  Receipt Date: 20090928
  Transmission Date: 20100525
  Serious: Yes (Hospitalization, Other)
  Sender: FDA-Public Use
  Company Number: JP-ROCHE-634409

PATIENT
  Sex: Female
  Weight: 42 kg

DRUGS (8)
  1. ROCEPHIN [Suspect]
     Indication: PYELONEPHRITIS
     Dosage: DRUG: ROCEPHIN 1 G BAG
     Route: 041
     Dates: start: 20060601, end: 20060602
  2. SEFTEM [Suspect]
     Indication: PYELONEPHRITIS
     Route: 048
     Dates: start: 20060601, end: 20060601
  3. NIFLAN [Suspect]
     Indication: DRUG USE FOR UNKNOWN INDICATION
     Route: 048
     Dates: start: 20060601, end: 20060601
  4. VOLTAREN [Suspect]
     Indication: DRUG USE FOR UNKNOWN INDICATION
     Dosage: DOSE FORM: RECTAL SUPPOSITORY
     Route: 054
     Dates: start: 20060601
  5. CRAVIT [Suspect]
     Indication: PYELONEPHRITIS
     Route: 048
     Dates: start: 20060602, end: 20060602
  6. LOBU [Suspect]
     Indication: DRUG USE FOR UNKNOWN INDICATION
     Route: 048
     Dates: start: 20060602, end: 20090602
  7. KASHIWADOL [Suspect]
     Indication: DRUG USE FOR UNKNOWN INDICATION
     Dosage: ROUTE: INTRAVENOUS (NOT OTHERWISE SPECIFIED)
     Route: 042
     Dates: start: 20060601, end: 20060602
  8. MENAMIN [Suspect]
     Indication: DRUG USE FOR UNKNOWN INDICATION
     Route: 030
     Dates: start: 20060601, end: 20060601

REACTIONS (2)
  - SMALL INTESTINAL PERFORATION [None]
  - STEVENS-JOHNSON SYNDROME [None]
